FAERS Safety Report 8010208-4 (Version None)
Quarter: 2011Q4

REPORT INFORMATION
  Report Type: 
  Country: None (occurrence: None)
  Receive Date: 20111228
  Receipt Date: 20111222
  Transmission Date: 20120403
  Serious: Yes (Hospitalization)
  Sender: FDA-Public Use
  Company Number: US-SANOFI-AVENTIS-2011SA084149

PATIENT
  Age: 49 Year
  Sex: Male

DRUGS (3)
  1. SOLOSTAR [Suspect]
     Dosage: 12 UNITS PER SS
     Dates: start: 20090101
  2. NOVOLOG [Concomitant]
     Route: 065
  3. LANTUS [Suspect]
     Dosage: 12 UNITS PER SS
     Route: 058
     Dates: start: 20090101

REACTIONS (5)
  - BLOOD GLUCOSE INCREASED [None]
  - THROMBOSIS [None]
  - INJECTION SITE NODULE [None]
  - GAIT DISTURBANCE [None]
  - ULCER [None]
